FAERS Safety Report 4340312-3 (Version None)
Quarter: 2004Q2

REPORT INFORMATION
  Report Type: 
  Country: None (occurrence: None)
  Receive Date: 20040412
  Receipt Date: 20040329
  Transmission Date: 20050107
  Serious: Yes (Hospitalization)
  Sender: FDA-Public Use
  Company Number: 2004021796

PATIENT
  Age: 19 Year
  Sex: Female

DRUGS (2)
  1. ZOLOFT [Suspect]
     Indication: DEPRESSION
     Dosage: 50 MG
     Dates: start: 20040201, end: 20040101
  2. ETIFOXINE (ETIFOXINE) [Concomitant]

REACTIONS (3)
  - ANOREXIA [None]
  - SOMNOLENCE [None]
  - SUICIDE ATTEMPT [None]
